FAERS Safety Report 8556456-6 (Version None)
Quarter: 2012Q3

REPORT INFORMATION
  Report Type: 
  Country: None (occurrence: None)
  Receive Date: 20120801
  Receipt Date: 20120727
  Transmission Date: 20120928
  Serious: Yes (Hospitalization, Other)
  Sender: FDA-Public Use
  Company Number: PHHY2012CA039556

PATIENT
  Weight: 108.4 kg

DRUGS (2)
  1. ZOLEDRONOC ACID [Suspect]
     Dosage: UNK UKN, UNK
     Route: 042
     Dates: start: 20100326
  2. VITAMIN D [Concomitant]
     Indication: OSTEOPOROSIS
     Dosage: 400 UKN, TID

REACTIONS (8)
  - FALL [None]
  - HUMERUS FRACTURE [None]
  - UPPER LIMB FRACTURE [None]
  - TREATMENT FAILURE [None]
  - GASTROINTESTINAL DISORDER [None]
  - BONE DENSITY DECREASED [None]
  - PAIN [None]
  - DRUG INEFFECTIVE [None]
